FAERS Safety Report 10159767 (Version 2)
Quarter: 2014Q2

REPORT INFORMATION
  Report Type: Report from Study
  Country: IT (occurrence: IT)
  Receive Date: 20140508
  Receipt Date: 20140515
  Transmission Date: 20141212
  Serious: Yes (Hospitalization)
  Sender: FDA-Public Use
  Company Number: IT-PFIZER INC-2014125770

PATIENT
  Age: 73 Year
  Sex: Male

DRUGS (5)
  1. SUTENT [Suspect]
     Indication: THYROID NEOPLASM
     Dosage: 37.5 MG, 1X/DAY
     Route: 048
     Dates: start: 20100601, end: 20140124
  2. TRIATEC [Concomitant]
     Dosage: UNK
  3. CREON [Concomitant]
     Dosage: UNK
  4. EUTIROX [Concomitant]
     Dosage: UNK
  5. COUMADIN [Concomitant]
     Dosage: UNK

REACTIONS (1)
  - Hypertensive crisis [Recovered/Resolved]
